FAERS Safety Report 10575272 (Version 1)
Quarter: 2014Q4

REPORT INFORMATION
  Report Type: Spontaneous
  Country: AT (occurrence: None)
  Receive Date: 20141107
  Receipt Date: 20141107
  Transmission Date: 20150529
  Serious: Yes (Hospitalization)
  Sender: FDA-Public Use
  Company Number: FK201404742

PATIENT
  Age: 235 Hour
  Sex: Male

DRUGS (3)
  1. SILDENAFIL (SILDENAFIL) [Suspect]
     Active Substance: SILDENAFIL
     Indication: PRODUCT USED FOR UNKNOWN INDICATION
     Dosage: LOADING DOSE OVER 45 MINUTES
     Route: 040
  2. NITRIC OXIDE (NITRIC OXIDE) INHALATION GAS, 800PPM [Concomitant]
     Active Substance: NITRIC OXIDE
  3. MILRINONE [Suspect]
     Active Substance: MILRINONE
     Indication: PRODUCT USED FOR UNKNOWN INDICATION
     Dosage: 22 HOURS PRIOR TO SILDENAFIL

REACTIONS (2)
  - Pulmonary haemorrhage [None]
  - Drug interaction [None]
